FAERS Safety Report 12700245 (Version 1)
Quarter: 2016Q3

REPORT INFORMATION
  Report Type: Spontaneous
  Country: US (occurrence: US)
  Receive Date: 20160830
  Receipt Date: 20160830
  Transmission Date: 20161109
  Serious: Yes (Death, Other)
  Sender: FDA-Public Use
  Company Number: US-MEDA-2016080089

PATIENT
  Age: 45 Year
  Sex: Male

DRUGS (4)
  1. ALPRAZOLAM. [Suspect]
     Active Substance: ALPRAZOLAM
  2. CARISOPRODOL. [Suspect]
     Active Substance: CARISOPRODOL
  3. OXYCODONE [Suspect]
     Active Substance: OXYCODONE
  4. ACETAMINOPHEN. [Suspect]
     Active Substance: ACETAMINOPHEN

REACTIONS (4)
  - Toxicity to various agents [Fatal]
  - Pneumonia [Fatal]
  - Hypoxic-ischaemic encephalopathy [Fatal]
  - Accidental overdose [Unknown]
